FAERS Safety Report 15594007 (Version 1)
Quarter: 2018Q4

REPORT INFORMATION
  Report Type: Spontaneous
  Country: SE (occurrence: SE)
  Receive Date: 20181107
  Receipt Date: 20181107
  Transmission Date: 20190205
  Serious: Yes (Other)
  Sender: FDA-Public Use
  Company Number: SE-BAYER-2018-201714

PATIENT
  Age: 43 Year
  Sex: Female

DRUGS (1)
  1. KYLEENA [Suspect]
     Active Substance: LEVONORGESTREL
     Dosage: 17.5 MCG/24HR, CONT
     Route: 015

REACTIONS (2)
  - Vulvar erosion [Recovered/Resolved]
  - Vulval ulceration [Recovered/Resolved]

NARRATIVE: CASE EVENT DATE: 2017
